FAERS Safety Report 6648088-1 (Version None)
Quarter: 2010Q1

REPORT INFORMATION
  Report Type: 
  Country: None (occurrence: None)
  Receive Date: 20100324
  Receipt Date: 20100319
  Transmission Date: 20100710
  Serious: Yes (Hospitalization)
  Sender: FDA-Public Use
  Company Number: PHHY2010CA17358

PATIENT
  Age: 80 Year
  Sex: Male

DRUGS (1)
  1. COMTAN [Suspect]
     Indication: PARKINSON'S DISEASE
     Dosage: 200 MG, QID
     Route: 048

REACTIONS (2)
  - DYSPHAGIA [None]
  - MALAISE [None]
